FAERS Safety Report 5486812-4 (Version None)
Quarter: 2007Q3

REPORT INFORMATION
  Report Type: 
  Country: None (occurrence: None)
  Receive Date: 20070925
  Receipt Date: 20070710
  Transmission Date: 20080115
  Serious: No
  Sender: FDA-Public Use
  Company Number: 2007US001452

PATIENT
  Age: 58 Year
  Sex: Female

DRUGS (9)
  1. VESICARE [Suspect]
     Dosage: 10 MG, BID
     Dates: start: 20070401
  2. PREDNISONE TAB [Concomitant]
  3. METOPROLOL TARTRATE [Concomitant]
  4. CYCLOBENZAPRINE HYDROCHLORIDE [Concomitant]
  5. LISINOPRIL (LISINOPRIL DIHYDRATE) [Concomitant]
  6. HALCION [Concomitant]
  7. LORTAB [Concomitant]
  8. INDOMETHACIN [Concomitant]
  9. LODRANE (PSEUDOEPHEDRINE HYDROCHLORIDE, BROMPHEIRAMINE MALEATE) [Concomitant]

REACTIONS (1)
  - DRY MOUTH [None]
